FAERS Safety Report 8391406-7 (Version None)
Quarter: 2012Q2

REPORT INFORMATION
  Report Type: 
  Country: None (occurrence: None)
  Receive Date: 20120529
  Receipt Date: 20120522
  Transmission Date: 20120825
  Serious: Yes (Hospitalization, Other)
  Sender: FDA-Public Use
  Company Number: US-JNJFOC-2010027663

PATIENT
  Sex: Male

DRUGS (2)
  1. MINOXIDIL [Suspect]
     Indication: ALOPECIA
     Dosage: DAILY DOSE TEXT: ONE CAPFUL ONCE DAILY
     Route: 061
     Dates: start: 20100901, end: 20101101
  2. MINOXIDIL [Suspect]
     Route: 061

REACTIONS (10)
  - ADVERSE REACTION [None]
  - SEBACEOUS CARCINOMA [None]
  - APPLICATION SITE PAIN [None]
  - WOUND HAEMORRHAGE [None]
  - DEPRESSION [None]
  - DERMATITIS CONTACT [None]
  - ACTINIC KERATOSIS [None]
  - EXFOLIATIVE RASH [None]
  - APPLICATION SITE EROSION [None]
  - APPLICATION SITE SCAB [None]
